FAERS Safety Report 11108968 (Version 2)
Quarter: 2015Q2

REPORT INFORMATION
  Report Type: Report from Study
  Country: BR (occurrence: BR)
  Receive Date: 20150513
  Receipt Date: 20150619
  Transmission Date: 20150821
  Serious: Yes (Hospitalization)
  Sender: FDA-Public Use
  Company Number: BR-BIOGENIDEC-2015BI061578

PATIENT
  Age: 53 Year
  Sex: Female

DRUGS (2)
  1. AVONEX [Suspect]
     Active Substance: INTERFERON BETA-1A
     Indication: MULTIPLE SCLEROSIS
     Route: 030
     Dates: end: 201501
  2. VITAMIN D [Concomitant]
     Active Substance: CHOLECALCIFEROL
     Dates: start: 20150101, end: 20150429

REACTIONS (1)
  - No adverse event [Not Recovered/Not Resolved]

NARRATIVE: CASE EVENT DATE: 20150430
